FAERS Safety Report 15298632 (Version 1)
Quarter: 2018Q3

REPORT INFORMATION
  Report Type: Spontaneous
  Country: JP (occurrence: JP)
  Receive Date: 20180820
  Receipt Date: 20180820
  Transmission Date: 20181010
  Serious: Yes (Death)
  Sender: FDA-Public Use
  Company Number: JP-PURDUE PHARMA-GBR-2017-0052034

PATIENT
  Sex: Male

DRUGS (2)
  1. OXIFAST [Suspect]
     Active Substance: OXYCODONE
     Dosage: UNK
     Route: 042
     Dates: start: 201710
  2. OXIFAST [Suspect]
     Active Substance: OXYCODONE
     Indication: PROSTATE CANCER
     Dosage: 1500 MG, DAILY
     Route: 042
     Dates: start: 20171128

REACTIONS (2)
  - Somnolence [Not Recovered/Not Resolved]
  - Malignant neoplasm progression [Fatal]

NARRATIVE: CASE EVENT DATE: 20171201
